FAERS Safety Report 17963418 (Version 1)
Quarter: 2020Q2

REPORT INFORMATION
  Report Type: Spontaneous
  Country: FR (occurrence: FR)
  Receive Date: 20200630
  Receipt Date: 20200630
  Transmission Date: 20200714
  Serious: Yes (Hospitalization)
  Sender: FDA-Public Use
  Company Number: PHHY2019FR021901

PATIENT
  Age: 12 Year
  Sex: Male
  Weight: 40 kg

DRUGS (1)
  1. PARACETAMOL [Suspect]
     Active Substance: ACETAMINOPHEN
     Indication: TOXICITY TO VARIOUS AGENTS
     Dosage: 24 G
     Route: 048
     Dates: start: 20190104

REACTIONS (4)
  - Vomiting [Recovered/Resolved]
  - Toxicity to various agents [Recovered/Resolved]
  - Hepatocellular injury [Recovering/Resolving]
  - Prothrombin time shortened [Recovered/Resolved]

NARRATIVE: CASE EVENT DATE: 20190104
